FAERS Safety Report 6292168-X (Version None)
Quarter: 2009Q3

REPORT INFORMATION
  Report Type: 
  Country: None (occurrence: None)
  Receive Date: 20090731
  Receipt Date: 20090723
  Transmission Date: 20100115
  Serious: Yes (Other)
  Sender: FDA-Public Use
  Company Number: FR-JNJFOC-20090707455

PATIENT
  Sex: Male
  Weight: 26 kg

DRUGS (5)
  1. CONCERTA LP [Suspect]
     Route: 048
  2. CONCERTA LP [Suspect]
     Route: 048
  3. CONCERTA LP [Suspect]
     Indication: DRUG USE FOR UNKNOWN INDICATION
     Route: 048
  4. RITALIN [Suspect]
     Route: 048
  5. RITALIN [Suspect]
     Indication: DRUG USE FOR UNKNOWN INDICATION
     Route: 048

REACTIONS (2)
  - DECREASED APPETITE [None]
  - GROWTH RETARDATION [None]
